FAERS Safety Report 5219579-5 (Version None)
Quarter: 2007Q1

REPORT INFORMATION
  Report Type: 
  Country: None (occurrence: None)
  Receive Date: 20070125
  Receipt Date: 20070115
  Transmission Date: 20070707
  Serious: Yes (Other)
  Sender: FDA-Public Use
  Company Number: CA-PFIZER INC-2007005279

PATIENT
  Sex: Male

DRUGS (5)
  1. XALATAN [Suspect]
     Indication: GLAUCOMA
     Route: 047
  2. METFORMIN [Concomitant]
     Indication: DIABETES MELLITUS
     Route: 048
  3. GLUCONORM [Concomitant]
     Indication: DIABETES MELLITUS
     Route: 048
  4. METOPROLOL SUCCINATE [Concomitant]
     Route: 048
  5. ALPHAGAN [Concomitant]
     Route: 047

REACTIONS (1)
  - BLOOD GLUCOSE INCREASED [None]
